FAERS Safety Report 17107351 (Version 4)
Quarter: 2020Q2

REPORT INFORMATION
  Report Type: Report from Study
  Country: None (occurrence: CO)
  Receive Date: 20191203
  Receipt Date: 20200429
  Transmission Date: 20200713
  Serious: Yes (Other)
  Sender: FDA-Public Use
  Company Number: CO-ABBVIE-19K-036-2931685-00

PATIENT
  Age: 69 Year
  Sex: Female

DRUGS (4)
  1. HUMIRA [Suspect]
     Active Substance: ADALIMUMAB
     Indication: RHEUMATOID ARTHRITIS
     Route: 058
     Dates: start: 20100414, end: 20190726
  2. CALCITRIOL. [Concomitant]
     Active Substance: CALCITRIOL
     Indication: PRODUCT USED FOR UNKNOWN INDICATION
  3. ACETAMINOPHEN. [Concomitant]
     Active Substance: ACETAMINOPHEN
     Indication: PRODUCT USED FOR UNKNOWN INDICATION
  4. LEFLUNOMIDE. [Concomitant]
     Active Substance: LEFLUNOMIDE
     Indication: PRODUCT USED FOR UNKNOWN INDICATION
     Route: 048

REACTIONS (15)
  - Glaucoma [Recovering/Resolving]
  - Dyspepsia [Recovering/Resolving]
  - Arthralgia [Recovered/Resolved]
  - Musculoskeletal chest pain [Not Recovered/Not Resolved]
  - Lung disorder [Recovering/Resolving]
  - Back pain [Recovering/Resolving]
  - Pulmonary fibrosis [Recovering/Resolving]
  - Pulmonary pain [Not Recovered/Not Resolved]
  - Pleural effusion [Unknown]
  - Bronchitis chronic [Recovering/Resolving]
  - Osteoporosis [Recovering/Resolving]
  - Influenza [Unknown]
  - Musculoskeletal chest pain [Recovered/Resolved]
  - Weight decreased [Recovering/Resolving]
  - Arthritis [Not Recovered/Not Resolved]

NARRATIVE: CASE EVENT DATE: 2010
